FAERS Safety Report 19051072 (Version 1)
Quarter: 2021Q1

REPORT INFORMATION
  Report Type: Spontaneous
  Country: US (occurrence: US)
  Receive Date: 20210323
  Receipt Date: 20210323
  Transmission Date: 20210420
  Serious: Yes (Hospitalization)
  Sender: FDA-Public Use
  Company Number: None

PATIENT
  Age: 65 Year
  Sex: Male

DRUGS (1)
  1. OPSUMIT [Suspect]
     Active Substance: MACITENTAN
     Indication: PULMONARY HYPERTENSION
     Route: 048
     Dates: start: 20201009

REACTIONS (4)
  - Asthenia [None]
  - Condition aggravated [None]
  - Gastrointestinal haemorrhage [None]
  - Respiratory failure [None]

NARRATIVE: CASE EVENT DATE: 20210301
